FAERS Safety Report 7236653-2 (Version None)
Quarter: 2011Q1

REPORT INFORMATION
  Report Type: 
  Country: None (occurrence: None)
  Receive Date: 20110120
  Receipt Date: 20110114
  Transmission Date: 20110831
  Serious: Yes (Death, Other)
  Sender: FDA-Public Use
  Company Number: FR-PFIZER INC-FR-WYE-H17845510

PATIENT
  Age: 40 Year
  Sex: Female

DRUGS (19)
  1. LEXOMIL [Suspect]
     Dosage: .5 DF, UNK
     Route: 048
     Dates: start: 20100614
  2. ULTRA-LEVURE [Suspect]
     Dosage: 1 DF, 3X/DAY
     Route: 048
     Dates: start: 20100614
  3. LOVENOX [Concomitant]
     Dosage: 1 DF (6000 IU/0.6 ML)
     Route: 058
     Dates: start: 20100602, end: 20100614
  4. INNOHEP [Concomitant]
     Dosage: UNK
     Route: 058
     Dates: start: 20100101, end: 20100101
  5. AUGMENTIN [Concomitant]
     Indication: PRODUCT USED FOR UNKNOWN INDICATION
     Dosage: 1 G, 3X/DAY
     Route: 048
     Dates: start: 20100614, end: 20100616
  6. EUPANTOL [Suspect]
     Indication: PRODUCT USED FOR UNKNOWN INDICATION
     Dosage: 40 MG, 1X/DAY
     Route: 048
     Dates: start: 20100614
  7. ESTRONE W/PROGESTERONE [Concomitant]
     Indication: PRODUCT USED FOR UNKNOWN INDICATION
     Dosage: UNK
     Route: 065
  8. TRIMEBUTINE [Concomitant]
     Dosage: 2 DF, 2X/DAY
     Route: 048
     Dates: start: 20100618
  9. LYSODREN [Suspect]
     Indication: ADRENOCORTICAL CARCINOMA
     Dosage: 1 DF, 4X/DAY
     Route: 048
     Dates: start: 20100604, end: 20100617
  10. INNOHEP [Concomitant]
     Dosage: .6 ML, UNK
     Route: 058
     Dates: start: 20100615
  11. SPASFON [Concomitant]
     Dosage: 2 DF,  3 IN 1 D
     Route: 048
     Dates: start: 20100614, end: 20100621
  12. PRIMPERAN TAB [Concomitant]
     Dosage: 3 DF, UNK
     Route: 048
     Dates: start: 20100618
  13. LYSODREN [Suspect]
     Dosage: 4.0 DF, UNK
     Route: 048
     Dates: start: 20100618, end: 20100623
  14. PARACETAMOL [Suspect]
     Dosage: 1 G, 4X/DAY
     Route: 048
     Dates: start: 20100614, end: 20100618
  15. STILNOX [Suspect]
     Dosage: 10 MG, 1X/DAY
     Route: 048
     Dates: start: 20100614
  16. HYDROCORTISONE SODIUM PHOSPHATE [Suspect]
     Dosage: 100 MG, 1X/DAY
     Route: 048
     Dates: start: 20100614
  17. LOVENOX [Concomitant]
     Dosage: UNK
     Route: 058
     Dates: start: 20100101, end: 20100101
  18. AUGMENTIN [Concomitant]
     Dosage: 1 G, 2X/DAY
     Route: 048
     Dates: start: 20100617, end: 20100621
  19. ZOPHREN [Suspect]
     Dosage: 1 DF, 2X/DAY
     Route: 048
     Dates: start: 20100614

REACTIONS (4)
  - DISEASE PROGRESSION [None]
  - CYTOLYTIC HEPATITIS [None]
  - ADRENOCORTICAL CARCINOMA [None]
  - CONDITION AGGRAVATED [None]
